FAERS Safety Report 18310964 (Version 6)
Quarter: 2020Q4

REPORT INFORMATION
  Report Type: Spontaneous
  Country: US (occurrence: US)
  Receive Date: 20200925
  Receipt Date: 20201123
  Transmission Date: 20210113
  Serious: No
  Sender: FDA-Public Use
  Company Number: US-BIOGEN-2020BI00908897

PATIENT
  Age: 44 Year
  Sex: Female

DRUGS (7)
  1. TECFIDERA [Suspect]
     Active Substance: DIMETHYL FUMARATE
     Indication: MULTIPLE SCLEROSIS
     Route: 065
     Dates: start: 20200304
  2. HYDROXYZINE [Concomitant]
     Active Substance: HYDROXYZINE HYDROCHLORIDE
     Route: 065
  3. TECFIDERA [Suspect]
     Active Substance: DIMETHYL FUMARATE
     Route: 065
     Dates: start: 20200219, end: 20200908
  4. ANTIHISTAMINE [Concomitant]
     Active Substance: ANTIHISTAMINES NOS
     Dosage: 3 TIMES A DAY
     Route: 065
  5. WELLBUTRIN [Concomitant]
     Active Substance: BUPROPION HYDROCHLORIDE
     Route: 065
  6. XANAX [Concomitant]
     Active Substance: ALPRAZOLAM
     Route: 065
  7. VENLAFAXINE [Concomitant]
     Active Substance: VENLAFAXINE HYDROCHLORIDE
     Route: 065

REACTIONS (17)
  - Drug ineffective [Unknown]
  - Flushing [Not Recovered/Not Resolved]
  - Optic nerve sheath haemorrhage [Unknown]
  - Product dose omission issue [Recovered/Resolved]
  - Sleep disorder [Not Recovered/Not Resolved]
  - Abnormal dreams [Unknown]
  - Nausea [Not Recovered/Not Resolved]
  - Cognitive disorder [Not Recovered/Not Resolved]
  - Amnesia [Unknown]
  - Hypoaesthesia [Unknown]
  - Muscle spasms [Unknown]
  - Bladder disorder [Not Recovered/Not Resolved]
  - Gait disturbance [Unknown]
  - Laboratory test abnormal [Unknown]
  - Panic attack [Not Recovered/Not Resolved]
  - Visual impairment [Unknown]
  - Hypersensitivity [Recovered/Resolved]

NARRATIVE: CASE EVENT DATE: 2020
